FAERS Safety Report 6050837-0 (Version None)
Quarter: 2009Q1

REPORT INFORMATION
  Report Type: 
  Country: None (occurrence: None)
  Receive Date: 20090121
  Receipt Date: 20090121
  Transmission Date: 20090719
  Serious: Yes (Life-Threatening, Other)
  Sender: FDA-Public Use
  Company Number: None

PATIENT
  Age: 20 Year
  Sex: Female
  Weight: 58.9676 kg

DRUGS (5)
  1. SINGULAIR [Suspect]
     Indication: ASTHMA
     Dosage: 1 TABLET DAILY PO
     Route: 048
     Dates: start: 20080101, end: 20090112
  2. SINGULAIR [Suspect]
     Indication: MULTIPLE ALLERGIES
     Dosage: 1 TABLET DAILY PO
     Route: 048
     Dates: start: 20080101, end: 20090112
  3. ANTI-DEPRESSANTS: CITALOPRAM [Concomitant]
  4. EFFEXOR [Concomitant]
  5. COUNSELING [Concomitant]

REACTIONS (2)
  - MAJOR DEPRESSION [None]
  - SUICIDAL IDEATION [None]
